FAERS Safety Report 6816775-8 (Version None)
Quarter: 2010Q3

REPORT INFORMATION
  Report Type: 
  Country: None (occurrence: None)
  Receive Date: 20100706
  Receipt Date: 20100630
  Transmission Date: 20110219
  Serious: Yes (Other)
  Sender: FDA-Public Use
  Company Number: PHHY2010BR14909

PATIENT
  Age: 39 Year
  Sex: Female
  Weight: 60 kg

DRUGS (4)
  1. RITALIN [Suspect]
     Indication: ATTENTION DEFICIT/HYPERACTIVITY DISORDER
     Dosage: QUARTER TABLET DAILY
     Route: 048
     Dates: start: 20090101
  2. RITALIN [Suspect]
     Dosage: HALF TABLET DAILY
     Route: 048
     Dates: start: 20091001
  3. RITALIN [Suspect]
     Dosage: 2 AND HALF TABLET DAILY
     Route: 048
  4. PROPRANOLOL [Concomitant]
     Indication: MITRAL VALVE PROLAPSE
     Dosage: UNK

REACTIONS (10)
  - BINGE EATING [None]
  - CONFUSIONAL STATE [None]
  - DEPRESSION [None]
  - DEREALISATION [None]
  - DIZZINESS [None]
  - FEELING ABNORMAL [None]
  - IRRITABILITY [None]
  - NERVOUSNESS [None]
  - PARAESTHESIA [None]
  - WRONG DRUG ADMINISTERED [None]
